FAERS Safety Report 12572037 (Version 6)
Quarter: 2017Q4

REPORT INFORMATION
  Report Type: Report from Study
  Country: CH (occurrence: CH)
  Receive Date: 20160719
  Receipt Date: 20171030
  Transmission Date: 20180320
  Serious: Yes (Hospitalization)
  Sender: FDA-Public Use
  Company Number: PHHY2016CH096250

PATIENT
  Age: 64 Year
  Sex: Female

DRUGS (16)
  1. ZOLPIDEM [Concomitant]
     Active Substance: ZOLPIDEM\ZOLPIDEM TARTRATE
     Indication: INSOMNIA
     Dosage: 10 MG, UNK
     Route: 065
     Dates: start: 2016
  2. TEMESTA [Concomitant]
     Active Substance: LORAZEPAM
     Indication: PARAESTHESIA
     Dosage: 1 MG, UNK
     Route: 048
     Dates: start: 20140827
  3. LERCANIDIPINA//LERCANIDIPINE [Concomitant]
     Indication: HYPERTENSION
     Dosage: 10 MG, UNK
     Route: 048
     Dates: start: 201602
  4. SEROQUEL [Concomitant]
     Active Substance: QUETIAPINE FUMARATE
     Indication: DEPRESSION
     Dosage: 50 MG, UNK
     Route: 065
     Dates: start: 201606
  5. MABTHERA [Concomitant]
     Active Substance: RITUXIMAB
     Indication: MULTIPLE SCLEROSIS
     Dosage: 1 G, UNK
     Route: 042
     Dates: start: 20160108, end: 20160122
  6. LYRICA [Concomitant]
     Active Substance: PREGABALIN
     Indication: MULTIPLE SCLEROSIS
     Dosage: 50 MG, BID
     Route: 048
     Dates: start: 2016
  7. LYRICA [Concomitant]
     Active Substance: PREGABALIN
     Indication: MUSCLE RELAXANT THERAPY
  8. ARICEPT [Concomitant]
     Active Substance: DONEPEZIL HYDROCHLORIDE
     Indication: COGNITIVE DISORDER
     Dosage: 5 MG, UNK
     Route: 048
     Dates: start: 201606
  9. CYMBALTA [Concomitant]
     Active Substance: DULOXETINE HYDROCHLORIDE
     Indication: DEPRESSION
     Dosage: 60 MG, UNK
     Route: 065
     Dates: start: 20130325
  10. TEMESTA [Concomitant]
     Active Substance: LORAZEPAM
     Indication: INSOMNIA
  11. ZANIDIP [Concomitant]
     Active Substance: LERCANIDIPINE HYDROCHLORIDE
     Indication: BLOOD PRESSURE ABNORMAL
     Dosage: 10 MG, UNK
     Route: 048
     Dates: start: 2016
  12. CALCIMAGON-D 3 [Concomitant]
     Indication: SUPPLEMENTATION THERAPY
     Dosage: 1 DF, UNK
     Route: 065
     Dates: start: 201311
  13. GILENYA [Suspect]
     Active Substance: FINGOLIMOD HYDROCHLORIDE
     Indication: MULTIPLE SCLEROSIS
     Dosage: QD
     Route: 048
     Dates: start: 20130827, end: 20151204
  14. NEURONTIN [Concomitant]
     Active Substance: GABAPENTIN
     Indication: PAIN
     Dosage: 100 MG, TID
     Route: 065
     Dates: start: 201503
  15. SIRDALUD [Concomitant]
     Active Substance: TIZANIDINE
     Indication: MUSCLE RELAXANT THERAPY
     Dosage: 6 MG, UNK
     Route: 048
     Dates: start: 20130112
  16. CALCIMAGON [Concomitant]
     Active Substance: CALCIUM
     Indication: MINERAL SUPPLEMENTATION
     Dosage: UNK
     Route: 065
     Dates: start: 201306

REACTIONS (11)
  - Motor dysfunction [Unknown]
  - Cognitive disorder [Unknown]
  - Gait disturbance [Unknown]
  - Concomitant disease aggravated [Unknown]
  - Fall [Recovered/Resolved with Sequelae]
  - Multiple sclerosis [Unknown]
  - Balance disorder [Not Recovered/Not Resolved]
  - Aphasia [Unknown]
  - Muscle spasticity [Recovered/Resolved with Sequelae]
  - Dizziness [Not Recovered/Not Resolved]
  - Language disorder [Unknown]

NARRATIVE: CASE EVENT DATE: 20160531
